FAERS Safety Report 5883494-4 (Version None)
Quarter: 2008Q3

REPORT INFORMATION
  Report Type: 
  Country: None (occurrence: None)
  Receive Date: 20080915
  Receipt Date: 20080910
  Transmission Date: 20090109
  Serious: Yes (Death, Hospitalization)
  Sender: FDA-Public Use
  Company Number: PHHY2008FR16527

PATIENT
  Age: 82 Year
  Sex: Male

DRUGS (1)
  1. EXELON [Suspect]
     Dosage: 9.5 MG, QD
     Route: 062

REACTIONS (4)
  - CARDIAC FAILURE [None]
  - CORONARY ARTERY DISEASE [None]
  - DERMATITIS BULLOUS [None]
  - LUNG DISORDER [None]
